FAERS Safety Report 13256007 (Version 1)
Quarter: 2017Q1

REPORT INFORMATION
  Report Type: Spontaneous
  Country: US (occurrence: US)
  Receive Date: 20170219
  Receipt Date: 20170219
  Transmission Date: 20170428
  Serious: Yes (Other)
  Sender: FDA-Public Use
  Company Number: None

PATIENT
  Age: 60 Year
  Sex: Male
  Weight: 90 kg

DRUGS (5)
  1. STOOL SOFTENER [Concomitant]
  2. BUPROPION. [Suspect]
     Active Substance: BUPROPION
     Indication: DEPRESSION
     Dosage: ?          QUANTITY:2 TABLET(S);?
     Route: 048
     Dates: start: 20151207, end: 20170219
  3. SKELAXIN [Concomitant]
     Active Substance: METAXALONE
  4. LAXATIVE [Concomitant]
     Active Substance: UNSPECIFIED INGREDIENT
  5. XANAX [Concomitant]
     Active Substance: ALPRAZOLAM

REACTIONS (13)
  - Chest discomfort [None]
  - Tongue biting [None]
  - Nasal dryness [None]
  - Oropharyngeal pain [None]
  - Anxiety [None]
  - Pain in extremity [None]
  - Constipation [None]
  - Hyperhidrosis [None]
  - Toothache [None]
  - Abnormal behaviour [None]
  - Dry mouth [None]
  - Hypertension [None]
  - Peripheral coldness [None]

NARRATIVE: CASE EVENT DATE: 20170216
